FAERS Safety Report 7991539-0 (Version None)
Quarter: 2011Q4

REPORT INFORMATION
  Report Type: 
  Country: None (occurrence: None)
  Receive Date: 20111219
  Receipt Date: 20111214
  Transmission Date: 20120403
  Serious: Yes (Death, Hospitalization)
  Sender: FDA-Public Use
  Company Number: AU-CELGENEUS-008-C5013-11112406

PATIENT
  Sex: Male
  Weight: 60 kg

DRUGS (4)
  1. OMEPRAZOLE [Concomitant]
     Dosage: 40 MILLIGRAM
     Route: 041
     Dates: start: 20111130
  2. LENALIDOMIDE [Suspect]
     Dosage: 2.5 MILLIGRAM
     Route: 048
     Dates: start: 20110523
  3. LENALIDOMIDE [Suspect]
     Dosage: 7.5 MILLIGRAM
     Route: 048
     Dates: start: 20111012, end: 20111116
  4. OMEPRAZOLE [Concomitant]
     Indication: ACIDOSIS
     Dosage: 20 MILLIGRAM
     Route: 048
     Dates: start: 20010101

REACTIONS (3)
  - LEUKOPENIA [None]
  - THROMBOCYTOPENIA [None]
  - ANAEMIA HAEMOLYTIC AUTOIMMUNE [None]
